FAERS Safety Report 7198542-1 (Version None)
Quarter: 2010Q4

REPORT INFORMATION
  Report Type: 
  Country: None (occurrence: None)
  Receive Date: 20101214
  Receipt Date: 20101201
  Transmission Date: 20110411
  Serious: Yes (Life-Threatening, Hospitalization)
  Sender: FDA-Public Use
  Company Number: 1000017518

PATIENT
  Age: 63 Year
  Sex: Male

DRUGS (7)
  1. NEBIVOLOL HCL [Suspect]
     Indication: HYPERTENSION
     Dosage: 5 MG (5 MG,1 IN 1 D),ORAL ; ORAL
     Route: 048
     Dates: start: 20050104
  2. LIPITOR (ATORVASTATIN) (ATORVASTATIN CALCIUM) [Concomitant]
  3. RASILEZ (ALISKIREN) (ALISKIREN) [Concomitant]
  4. HYDROCHLOROTHIAZIDE [Concomitant]
  5. DICLOFENAC SODIUM [Concomitant]
  6. ASA (ACETYLSALICYLIC ACID (ACETYLSALICYLIC ACID) (ACETYLSALICYLIC ACID [Concomitant]
  7. CARBASALATE CALCIUM (CARBASALATE  CALCIUM) (CARBASALATE CALCIUM) [Concomitant]

REACTIONS (2)
  - PSYCHOTIC DISORDER [None]
  - SUICIDE ATTEMPT [None]
